FAERS Safety Report 16264978 (Version 1)
Quarter: 2019Q2

REPORT INFORMATION
  Report Type: Spontaneous
  Country: GB (occurrence: GB)
  Receive Date: 20190502
  Receipt Date: 20190502
  Transmission Date: 20190711
  Serious: Yes (Other)
  Sender: FDA-Public Use
  Company Number: GB-TEVA-2019-GB-1042594

PATIENT
  Age: 52 Year
  Sex: Female
  Weight: 103.86 kg

DRUGS (17)
  1. TERBUTALINE SULFATE. [Concomitant]
     Active Substance: TERBUTALINE SULFATE
  2. FERROUS SULFATE. [Concomitant]
     Active Substance: FERROUS SULFATE
  3. ADIZEM [Concomitant]
     Active Substance: DILTIAZEM HYDROCHLORIDE
  4. PARACETAMOL [Concomitant]
     Active Substance: ACETAMINOPHEN
  5. THYROXINE [Concomitant]
     Active Substance: LEVOTHYROXINE
  6. PIROXICAM. [Concomitant]
     Active Substance: PIROXICAM
  7. RANITIDINE. [Suspect]
     Active Substance: RANITIDINE
     Indication: GASTROOESOPHAGEAL REFLUX DISEASE
     Dosage: 300 MILLIGRAM DAILY;
     Route: 048
     Dates: start: 20190314, end: 20190316
  8. TRAMADOL HYDROCHLORIDE. [Concomitant]
     Active Substance: TRAMADOL HYDROCHLORIDE
  9. BUTRANS [Concomitant]
     Active Substance: BUPRENORPHINE
  10. DIAZEPAM. [Concomitant]
     Active Substance: DIAZEPAM
  11. DUORESP SPIROMAX [Concomitant]
     Active Substance: BUDESONIDE\FORMOTEROL
  12. FUROSEMIDE. [Concomitant]
     Active Substance: FUROSEMIDE
  13. CANDESARTAN. [Concomitant]
     Active Substance: CANDESARTAN
  14. FEXOFENADINE HYDROCHLORIDE. [Concomitant]
     Active Substance: FEXOFENADINE HYDROCHLORIDE
  15. FLIXONASE [Concomitant]
     Active Substance: FLUTICASONE PROPIONATE
  16. OMEPRAZOLE. [Concomitant]
     Active Substance: OMEPRAZOLE
  17. MONTELUKAST [Concomitant]
     Active Substance: MONTELUKAST SODIUM

REACTIONS (4)
  - Rash generalised [Recovered/Resolved with Sequelae]
  - Chromaturia [Unknown]
  - Inflammatory marker increased [Recovered/Resolved with Sequelae]
  - Liver function test increased [Recovered/Resolved with Sequelae]

NARRATIVE: CASE EVENT DATE: 20190314
